FAERS Safety Report 12666157 (Version 1)
Quarter: 2016Q3

REPORT INFORMATION
  Report Type: Spontaneous
  Country: US (occurrence: US)
  Receive Date: 20160818
  Receipt Date: 20160818
  Transmission Date: 20161109
  Serious: No
  Sender: FDA-Public Use
  Company Number: US-JAZZ-2016-US-005760

PATIENT
  Sex: Female

DRUGS (20)
  1. MODAFINIL. [Concomitant]
     Active Substance: MODAFINIL
  2. XYREM [Suspect]
     Active Substance: SODIUM OXYBATE
     Indication: NARCOLEPSY
     Dosage: 2.25 G, BID
     Route: 048
     Dates: start: 201512, end: 201601
  3. XYREM [Suspect]
     Active Substance: SODIUM OXYBATE
     Indication: CATAPLEXY
     Dosage: 3 G, BID
     Route: 048
     Dates: start: 201601
  4. METFORMIN HCL [Concomitant]
     Active Substance: METFORMIN HYDROCHLORIDE
  5. MULTIVITAMINS [Concomitant]
     Active Substance: VITAMINS
  6. CLARITIN [Concomitant]
     Active Substance: LORATADINE
  7. EPIPEN [Concomitant]
     Active Substance: EPINEPHRINE
  8. FLOVENT HFA [Concomitant]
     Active Substance: FLUTICASONE PROPIONATE
  9. ALBUTEROL SULFATE. [Concomitant]
     Active Substance: ALBUTEROL SULFATE
  10. BOTOX [Concomitant]
     Active Substance: ONABOTULINUMTOXINA
  11. CARAFATE [Concomitant]
     Active Substance: SUCRALFATE
  12. PRILOSEC [Concomitant]
     Active Substance: OMEPRAZOLE MAGNESIUM
  13. TOPAMAX [Concomitant]
     Active Substance: TOPIRAMATE
  14. VITAMIN B12 [Concomitant]
     Active Substance: CYANOCOBALAMIN
  15. COENZYME Q10 [Concomitant]
     Active Substance: UBIDECARENONE
  16. FIORICET [Concomitant]
     Active Substance: ACETAMINOPHEN\BUTALBITAL\CAFFEINE
  17. PROAIR HFA [Concomitant]
     Active Substance: ALBUTEROL SULFATE
  18. NORCO [Concomitant]
     Active Substance: ACETAMINOPHEN\HYDROCODONE BITARTRATE
  19. LISINOPRIL AND HYDROCHLOROTHIAZIDE [Concomitant]
     Active Substance: HYDROCHLOROTHIAZIDE\LISINOPRIL
  20. VIMOVO [Concomitant]
     Active Substance: ESOMEPRAZOLE MAGNESIUM\NAPROXEN

REACTIONS (2)
  - Activities of daily living impaired [Unknown]
  - Somnolence [Unknown]
